FAERS Safety Report 4470126-5 (Version None)
Quarter: 2004Q3

REPORT INFORMATION
  Report Type: 
  Country: None (occurrence: None)
  Receive Date: 20040910
  Receipt Date: 20040718
  Transmission Date: 20050211
  Serious: No
  Sender: FDA-Public Use
  Company Number: 2004224274US

PATIENT
  Age: 54 Year
  Sex: Female
  Weight: 83 kg

DRUGS (3)
  1. BEXTRA [Suspect]
     Indication: OSTEOARTHRITIS
     Dosage: 20 MG, QD
     Dates: start: 20040629, end: 20040717
  2. SYNTHROID [Concomitant]
  3. SINGULAIR [Concomitant]

REACTIONS (3)
  - MUCOUS MEMBRANE DISORDER [None]
  - RASH PRURITIC [None]
  - SWELLING FACE [None]
